FAERS Safety Report 13821752 (Version 2)
Quarter: 2017Q3

REPORT INFORMATION
  Report Type: Spontaneous
  Country: US (occurrence: US)
  Receive Date: 20170801
  Receipt Date: 20170810
  Transmission Date: 20171127
  Serious: Yes (Death, Hospitalization, Other)
  Sender: FDA-Public Use
  Company Number: US-AUROBINDO-AUR-APL-2017-38199

PATIENT
  Age: 80 Year
  Sex: Male

DRUGS (3)
  1. MILK OF MAGNESIA [Suspect]
     Active Substance: MAGNESIUM HYDROXIDE
     Indication: CONSTIPATION
     Route: 065
  2. MAGNESIUM OXIDE. [Suspect]
     Active Substance: MAGNESIUM OXIDE
     Indication: CONSTIPATION
     Route: 065
  3. MAGNESIUM [Suspect]
     Active Substance: MAGNESIUM
     Indication: PRODUCT USED FOR UNKNOWN INDICATION
     Route: 065

REACTIONS (16)
  - Hypoaesthesia [Unknown]
  - Depressed level of consciousness [Unknown]
  - Cardio-respiratory arrest [Fatal]
  - Dysarthria [Unknown]
  - Hypermagnesaemia [Unknown]
  - Drug ineffective [Unknown]
  - Dyspnoea [Unknown]
  - Fatigue [Unknown]
  - Muscular weakness [Unknown]
  - Respiratory acidosis [Unknown]
  - Constipation [Unknown]
  - Bradycardia [Not Recovered/Not Resolved]
  - Hypotension [Not Recovered/Not Resolved]
  - Hypoxia [Unknown]
  - Acute kidney injury [Unknown]
  - Bundle branch block [Unknown]
